FAERS Safety Report 18037818 (Version 1)
Quarter: 2020Q3

REPORT INFORMATION
  Report Type: Report from Study
  Country: US (occurrence: US)
  Receive Date: 20200717
  Receipt Date: 20200717
  Transmission Date: 20201103
  Serious: Yes (Hospitalization, Other)
  Sender: FDA-Public Use
  Company Number: US-GILEAD-2020-0483833

PATIENT
  Age: 16 Year
  Sex: Male

DRUGS (6)
  1. ONDANSETRON [Concomitant]
     Active Substance: ONDANSETRON
  2. IBUPROFEN. [Concomitant]
     Active Substance: IBUPROFEN
  3. NORDITROPIN [Concomitant]
     Active Substance: SOMATROPIN
  4. AZTREONAM LYSINE [Suspect]
     Active Substance: AZTREONAM LYSINE
     Indication: CYSTIC FIBROSIS LUNG
     Dosage: INHALE 1 VIAL VIA NEB TID CONTINUOUSLY
     Route: 055
     Dates: start: 20200526
  5. TAMSULOSIN [Concomitant]
     Active Substance: TAMSULOSIN
  6. TRIKAFTA [Concomitant]
     Active Substance: ELEXACAFTOR\IVACAFTOR\TEZACAFTOR

REACTIONS (1)
  - Nephrolithiasis [Unknown]
